FAERS Safety Report 5506409-7 (Version None)
Quarter: 2007Q4

REPORT INFORMATION
  Report Type: 
  Country: None (occurrence: None)
  Receive Date: 20071101
  Receipt Date: 20071017
  Transmission Date: 20080405
  Serious: Yes (Hospitalization)
  Sender: FDA-Public Use
  Company Number: 2007JP004102

PATIENT
  Age: 28 Year
  Sex: Female
  Weight: 46 kg

DRUGS (6)
  1. PROTOPIC [Suspect]
     Indication: DERMATITIS ATOPIC
     Dosage: 0.1%, TOPICAL
     Route: 061
     Dates: start: 19991210, end: 20070830
  2. ALLEGRA (FEXOFENADINE HYDROCHLORIDE) [Concomitant]
  3. METHADERM (DEXAMETHASONE DIPROPIONATE) [Concomitant]
  4. TOPSYM (FLUOCINONIDE) [Concomitant]
  5. ACUATIM (NADIFLOXACIN) [Concomitant]
  6. STEROID EXTERNAL [Concomitant]

REACTIONS (2)
  - BLOOD LACTATE DEHYDROGENASE INCREASED [None]
  - DIFFUSE LARGE B-CELL LYMPHOMA STAGE III [None]
